FAERS Safety Report 21624551 (Version 1)
Quarter: 2022Q4

REPORT INFORMATION
  Report Type: Report from Study
  Country: US (occurrence: US)
  Receive Date: 20221121
  Receipt Date: 20221121
  Transmission Date: 20230112
  Serious: No
  Sender: FDA-Public Use
  Company Number: US-ABBVIE-4175611

PATIENT
  Sex: Male

DRUGS (2)
  1. SKYRIZI [Suspect]
     Active Substance: RISANKIZUMAB-RZAA
     Indication: Psoriasis
     Dosage: STRENGTH: 150 MILLIGRAMS?FREQUENCY TEXT: WEEK 0
     Route: 058
     Dates: start: 20220909, end: 20220909
  2. SKYRIZI [Suspect]
     Active Substance: RISANKIZUMAB-RZAA
     Dosage: STRENGTH: 150 MILLIGRAMS?FREQUENCY TEXT: WEEK 4  THEN EVERY 12 WEEKS
     Route: 058
     Dates: start: 20221007

REACTIONS (1)
  - Dyspnoea [Unknown]
